FAERS Safety Report 13895504 (Version 1)
Quarter: 2017Q3

REPORT INFORMATION
  Report Type: Spontaneous
  Country: US (occurrence: US)
  Receive Date: 20170823
  Receipt Date: 20170823
  Transmission Date: 20171127
  Serious: Yes (Other)
  Sender: FDA-Public Use
  Company Number: US-ENDO PHARMACEUTICALS INC-2017-000951

PATIENT
  Age: 57 Year
  Sex: Female

DRUGS (2)
  1. PREDNISONE TABLETS [Suspect]
     Active Substance: PREDNISONE
     Indication: PRODUCT USED FOR UNKNOWN INDICATION
     Dosage: 5 MG, UNKNOWN
     Route: 065
  2. XELJANZ [Concomitant]
     Active Substance: TOFACITINIB CITRATE
     Indication: RHEUMATOID ARTHRITIS
     Dosage: 1 TABLET BY MOUTH TWICE A DAY
     Route: 048

REACTIONS (4)
  - Swelling [Unknown]
  - Diabetes mellitus [Unknown]
  - Wrong technique in product usage process [Unknown]
  - Weight increased [Unknown]

NARRATIVE: CASE EVENT DATE: 20170111
